FAERS Safety Report 9966561 (Version 2)
Quarter: 2014Q1

REPORT INFORMATION
  Report Type: Report from Study
  Country: US (occurrence: US)
  Receive Date: 20140305
  Receipt Date: 20140305
  Transmission Date: 20141002
  Serious: No
  Sender: FDA-Public Use
  Company Number: US-ABBVIE-13P-163-1116157-00

PATIENT
  Age: 44 Year
  Sex: Female
  Weight: 74.91 kg

DRUGS (14)
  1. HUMIRA [Suspect]
     Indication: RHEUMATOID ARTHRITIS
     Route: 058
     Dates: start: 201206, end: 201306
  2. PREDNISONE [Suspect]
     Indication: PRODUCT USED FOR UNKNOWN INDICATION
  3. VENLAFAXINE [Concomitant]
     Indication: PRODUCT USED FOR UNKNOWN INDICATION
  4. FENOFIBRATE [Concomitant]
     Indication: BLOOD TRIGLYCERIDES INCREASED
  5. HYDROCODONE AP [Concomitant]
     Indication: PRODUCT USED FOR UNKNOWN INDICATION
  6. NIACIN [Concomitant]
     Indication: BLOOD TRIGLYCERIDES INCREASED
  7. OMEPRAZOLE [Concomitant]
     Indication: GASTROOESOPHAGEAL REFLUX DISEASE
  8. OMEPRAZOLE [Concomitant]
     Indication: PRODUCT USED FOR UNKNOWN INDICATION
  9. VENTOLIN [Concomitant]
     Indication: PRODUCT USED FOR UNKNOWN INDICATION
  10. ZOLPIDEM [Concomitant]
     Indication: PRODUCT USED FOR UNKNOWN INDICATION
  11. HYDROCHLOROTHIAZIDE [Concomitant]
     Indication: PRODUCT USED FOR UNKNOWN INDICATION
  12. FISH OIL [Concomitant]
     Indication: MINERAL SUPPLEMENTATION
  13. GABAPENTIN [Concomitant]
     Indication: PAIN
  14. AMITRIPTYLINE [Concomitant]
     Indication: DEPRESSION

REACTIONS (21)
  - Gastrooesophageal reflux disease [Unknown]
  - Dyspepsia [Unknown]
  - Weight decreased [Unknown]
  - Crying [Unknown]
  - Carpal tunnel syndrome [Unknown]
  - Insomnia [Unknown]
  - Stomatitis [Unknown]
  - Wound [Unknown]
  - Wound [Unknown]
  - Wound [Unknown]
  - Furuncle [Unknown]
  - Wound complication [Unknown]
  - Wound complication [Unknown]
  - Wound complication [Unknown]
  - Depression [Unknown]
  - Drug ineffective [Unknown]
  - Herpes zoster [Unknown]
  - Decreased appetite [Unknown]
  - Oral candidiasis [Not Recovered/Not Resolved]
  - Staphylococcal infection [Recovered/Resolved]
  - Cyst [Recovered/Resolved]
